FAERS Safety Report 14559254 (Version 1)
Quarter: 2018Q1

REPORT INFORMATION
  Report Type: Spontaneous
  Country: US (occurrence: US)
  Receive Date: 20180221
  Receipt Date: 20180221
  Transmission Date: 20180509
  Serious: No
  Sender: FDA-Public Use
  Company Number: None

PATIENT
  Age: 58 Year
  Sex: Female
  Weight: 74.84 kg

DRUGS (11)
  1. CITRACAL [Concomitant]
     Active Substance: CALCIUM CITRATE
  2. RESTASIS [Suspect]
     Active Substance: CYCLOSPORINE
     Indication: DRY EYE
     Dosage: DOSE - 1 DROP INTO EACH EYE
     Route: 047
     Dates: start: 20180104, end: 20180127
  3. BIOTIN [Concomitant]
     Active Substance: BIOTIN
  4. MULTIVITAMIN [Concomitant]
     Active Substance: VITAMINS
  5. ESTER C [Concomitant]
  6. MELATONIN [Concomitant]
     Active Substance: MELATONIN
  7. GLUCOSAMINE [Concomitant]
     Active Substance: GLUCOSAMINE
  8. PREDNISONE. [Concomitant]
     Active Substance: PREDNISONE
  9. ASPIRIN 81 MG [Concomitant]
     Active Substance: ASPIRIN
  10. NEURONTIN [Concomitant]
     Active Substance: GABAPENTIN
  11. PLAQUENIL [Concomitant]
     Active Substance: HYDROXYCHLOROQUINE SULFATE

REACTIONS (6)
  - Metamorphopsia [None]
  - Dizziness [None]
  - Vision blurred [None]
  - Nausea [None]
  - Eye pain [None]
  - Photophobia [None]

NARRATIVE: CASE EVENT DATE: 20180104
